FAERS Safety Report 24139751 (Version 1)
Quarter: 2024Q3

REPORT INFORMATION
  Report Type: Spontaneous
  Country: PT (occurrence: PT)
  Receive Date: 20240726
  Receipt Date: 20240726
  Transmission Date: 20241017
  Serious: Yes (Other)
  Sender: AUROBINDO
  Company Number: PT-INFARMED-R202407-240

PATIENT
  Age: 38 Year
  Sex: Female

DRUGS (1)
  1. AMOXICILLIN\CLAVULANIC ACID [Suspect]
     Active Substance: AMOXICILLIN\CLAVULANIC ACID
     Indication: Erysipelas
     Dosage: UNK
     Route: 048
     Dates: start: 20240702, end: 20240705

REACTIONS (2)
  - Generalised oedema [Unknown]
  - Pruritus [Unknown]

NARRATIVE: CASE EVENT DATE: 20240702
